FAERS Safety Report 4519118-8 (Version None)
Quarter: 2004Q4

REPORT INFORMATION
  Report Type: 
  Country: None (occurrence: None)
  Receive Date: 20041201
  Receipt Date: 20051115
  Transmission Date: 20050328
  Serious: Yes (Hospitalization)
  Sender: FDA-Public Use
  Company Number: 2004CG02280

PATIENT
  Age: 80 Year
  Sex: Female

DRUGS (5)
  1. OMEPRAZOLE [Suspect]
     Indication: OESOPHAGITIS
     Dosage: 10 MG QD PO
     Route: 048
     Dates: end: 20040914
  2. KARDEGIC/FRA/ [Suspect]
     Dosage: 1 DF QD PO
     Route: 048
     Dates: end: 20040914
  3. ARICEPT [Suspect]
     Indication: DEMENTIA ALZHEIMER'S TYPE
     Dosage: 1 DF QD PO
     Route: 048
  4. LASILIX [Suspect]
     Dates: end: 20040914
  5. NOVATREX ^LEDERLE^ [Suspect]
     Indication: RHEUMATOID ARTHRITIS
     Dosage: 7.5 MG WEEK PO
     Route: 048
     Dates: end: 20040913

REACTIONS (4)
  - FEBRILE NEUTROPENIA [None]
  - INFECTION [None]
  - RASH VESICULAR [None]
  - STOMATITIS HAEMORRHAGIC [None]
